FAERS Safety Report 20936454 (Version 2)
Quarter: 2025Q2

REPORT INFORMATION
  Report Type: Report from Study
  Country: IT (occurrence: IT)
  Receive Date: 20220609
  Receipt Date: 20250516
  Transmission Date: 20250716
  Serious: Yes (Other)
  Sender: ROCHE
  Company Number: IT-ROCHE-3097411

PATIENT
  Age: 52 Year

DRUGS (1)
  1. ALECENSA [Suspect]
     Active Substance: ALECTINIB HYDROCHLORIDE
     Indication: Lung adenocarcinoma
     Route: 065
     Dates: start: 20211115

REACTIONS (3)
  - Hyperbilirubinaemia [Recovering/Resolving]
  - Nausea [Unknown]
  - Abdominal discomfort [Unknown]
